FAERS Safety Report 8046259-3 (Version None)
Quarter: 2012Q1

REPORT INFORMATION
  Report Type: 
  Country: None (occurrence: None)
  Receive Date: 20120113
  Receipt Date: 20120102
  Transmission Date: 20120608
  Serious: Yes (Hospitalization, Other)
  Sender: FDA-Public Use
  Company Number: JP-PFIZER INC-2012000878

PATIENT
  Age: 71 Year
  Sex: Male

DRUGS (3)
  1. AMIODARONE HCL [Suspect]
     Dosage: 4G ONCE
     Route: 048
  2. SERTRALINE [Concomitant]
     Indication: BIPOLAR DISORDER
     Dosage: UNK
  3. CLOTIAZEPAM [Concomitant]
     Indication: BIPOLAR DISORDER
     Dosage: UNK

REACTIONS (3)
  - INTENTIONAL OVERDOSE [None]
  - TOXICITY TO VARIOUS AGENTS [None]
  - SUICIDE ATTEMPT [None]
